FAERS Safety Report 4928550-X (Version None)
Quarter: 2006Q1

REPORT INFORMATION
  Report Type: 
  Country: None (occurrence: None)
  Receive Date: 20060223
  Receipt Date: 20060131
  Transmission Date: 20060701
  Serious: Yes (Other)
  Sender: FDA-Public Use
  Company Number: US200602001406

PATIENT
  Age: 37 Year
  Sex: Female

DRUGS (3)
  1. CYMBALTA [Suspect]
     Dosage: 60 MG,
  2. DEXAMFETAMINE              (DEXAMFETAMINE) [Concomitant]
  3. THYROID TAB [Concomitant]

REACTIONS (1)
  - HEPATIC ENZYME INCREASED [None]
